FAERS Safety Report 4312189-3 (Version None)
Quarter: 2004Q1

REPORT INFORMATION
  Report Type: 
  Country: None (occurrence: None)
  Receive Date: 20040303
  Receipt Date: 20040226
  Transmission Date: 20041129
  Serious: Yes (Other)
  Sender: FDA-Public Use
  Company Number: 2004003698

PATIENT
  Age: 83 Year
  Sex: Female
  Weight: 54 kg

DRUGS (8)
  1. DIFLUCAN [Suspect]
     Indication: PNEUMONIA
     Dosage: 400 MG (BID), INTRAVENOUS
     Route: 042
     Dates: start: 20031215, end: 20031219
  2. CIPROFLOXACIN [Suspect]
     Indication: PNEUMONIA
     Dosage: 600 GM (BID), INTRAVENOUS
     Route: 042
     Dates: start: 20031212, end: 20031219
  3. ELASPOL (SIVELESTAT) [Suspect]
     Indication: SYSTEMIC INFLAMMATORY RESPONSE SYNDROME
     Dosage: 200 MG (DAILY), INTRAVENOUS
     Route: 042
     Dates: start: 20031216, end: 20031219
  4. AMINO ACID/ELECTROLYTES/GLUCOSE/VITAMINS (GLUCOSE, VITAMINS NOS, AMINO [Concomitant]
  5. FAMOTIDINE [Concomitant]
  6. FUROSEMIDE [Concomitant]
  7. AMINOFLUID (GLUCOSE, AMINO ACIDS NOS, ELECTROLYTES NOS) [Concomitant]
  8. INSULIN HUMAN (INSULIN HUMAN) [Concomitant]

REACTIONS (3)
  - ALANINE AMINOTRANSFERASE INCREASED [None]
  - ASPARTATE AMINOTRANSFERASE INCREASED [None]
  - SYSTEMIC INFLAMMATORY RESPONSE SYNDROME [None]
